FAERS Safety Report 5012749-0 (Version None)
Quarter: 2006Q2

REPORT INFORMATION
  Report Type: 
  Country: None (occurrence: None)
  Receive Date: 20060530
  Receipt Date: 20060119
  Transmission Date: 20061013
  Serious: Yes (Hospitalization, Other)
  Sender: FDA-Public Use
  Company Number: US-BRISTOL-MYERS SQUIBB COMPANY-13255211

PATIENT
  Age: 78 Year
  Sex: Female
  Weight: 81 kg

DRUGS (6)
  1. ERBITUX [Suspect]
     Indication: COLORECTAL CANCER
     Route: 042
     Dates: start: 20051111, end: 20051111
  2. BENADRYL [Concomitant]
     Indication: PREMEDICATION
  3. CAMPTOSAR [Concomitant]
  4. DEXAMETHASONE TAB [Concomitant]
     Indication: PREMEDICATION
  5. KYTRIL [Concomitant]
     Indication: PREMEDICATION
  6. TYLENOL (GELTAB) [Concomitant]
     Indication: PREMEDICATION

REACTIONS (1)
  - INFUSION RELATED REACTION [None]
